FAERS Safety Report 7285586 (Version 11)
Quarter: 2012Q4

REPORT INFORMATION
  Report Type: Report from Study
  Country: JP (occurrence: JP)
  Receive Date: 20100219
  Receipt Date: 20121212
  Transmission Date: 20130627
  Serious: Yes (Hospitalization, Other)
  Sender: FDA-Public Use
  Company Number: JP-ROCHE-660282

PATIENT
  Age: 45 Year
  Sex: Male
  Weight: 79.1 kg

DRUGS (33)
  1. TOCILIZUMAB [Suspect]
     Indication: CASTLEMAN^S DISEASE
     Route: 041
     Dates: start: 20090619, end: 20090811
  2. TOCILIZUMAB [Suspect]
     Route: 041
     Dates: start: 20090818, end: 20090901
  3. TOCILIZUMAB [Suspect]
     Route: 041
     Dates: start: 20090915, end: 20091207
  4. TOCILIZUMAB [Suspect]
     Route: 041
     Dates: start: 20091215, end: 20100316
  5. TOCILIZUMAB [Suspect]
     Route: 041
     Dates: start: 20100330, end: 20100413
  6. TOCILIZUMAB [Suspect]
     Route: 041
     Dates: start: 20100427, end: 20100622
  7. TOCILIZUMAB [Suspect]
     Route: 041
     Dates: start: 20100706, end: 20100720
  8. TOCILIZUMAB [Suspect]
     Route: 041
     Dates: start: 20100810, end: 20101012
  9. TOCILIZUMAB [Suspect]
     Route: 041
     Dates: start: 20101109, end: 20110104
  10. PREDONINE [Suspect]
     Indication: CASTLEMAN^S DISEASE
     Dosage: NOTE: 10MG X 1, 5MG X 2.
     Route: 048
  11. PREDONINE [Suspect]
     Dosage: NOTE: 7.5MGX1, 5MGX2
     Route: 048
     Dates: start: 20090408, end: 20090512
  12. PREDONINE [Suspect]
     Route: 048
     Dates: start: 20090513, end: 20090824
  13. PREDONINE [Suspect]
     Route: 048
     Dates: start: 20090825, end: 20090908
  14. PREDONINE [Suspect]
     Dosage: NOTE: 20MG X 1,15MG X 2. STOP DATE REPORTED AS 2009.
     Route: 048
  15. PREDONINE [Suspect]
     Dosage: NOTE: DIVIDED INTO 3 DOSES.
     Route: 048
     Dates: start: 2009, end: 20091213
  16. PREDONINE [Suspect]
     Route: 048
     Dates: start: 20091214, end: 20091220
  17. PREDONINE [Suspect]
     Dosage: NOTE: DIVIDED INTO  3 DOSES
     Route: 048
     Dates: start: 20091221, end: 20100104
  18. PREDONINE [Suspect]
     Dosage: NOTE: DIVIDED INTO 3 DOSES
     Route: 048
     Dates: start: 20100105, end: 20100111
  19. PREDONINE [Suspect]
     Dosage: NOTE: DIVIDED INTO THREE DOSES
     Route: 048
     Dates: start: 20100112, end: 20100607
  20. PREDONINE [Suspect]
     Dosage: NOTE: DIVIDED INTO 3 DOSES
     Route: 048
     Dates: start: 20100608, end: 20100802
  21. PREDONINE [Suspect]
     Route: 048
     Dates: start: 20100803, end: 20101206
  22. PREDONINE [Suspect]
     Dosage: NOTE: DIVIDED INTO 3 DOSES
     Route: 048
     Dates: start: 20101207, end: 20110201
  23. PREDONINE [Suspect]
     Route: 048
     Dates: start: 20110202, end: 20111212
  24. PREDONINE [Suspect]
     Route: 048
  25. NEORAL [Suspect]
     Indication: CASTLEMAN^S DISEASE
     Dosage: FORM: PERORAL AGENT
     Route: 048
  26. NEORAL [Suspect]
     Dosage: FORM: PERORAL AGENT
     Route: 048
     Dates: start: 20090707, end: 20090728
  27. NEORAL [Suspect]
     Dosage: FORM: PERORAL AGENT
     Route: 048
     Dates: start: 20090729, end: 20090811
  28. NEORAL [Suspect]
     Dosage: STOP DATE REPORTED AS 2009. FORM: PERORAL AGENT
     Route: 048
  29. NEORAL [Suspect]
     Route: 048
     Dates: start: 2009, end: 20091213
  30. ALDACTONE A [Suspect]
     Indication: PRODUCT USED FOR UNKNOWN INDICATION
     Route: 048
     Dates: start: 20100128, end: 20100421
  31. ENDOXAN [Concomitant]
     Indication: CASTLEMAN^S DISEASE
     Route: 048
     Dates: start: 20100119, end: 20110620
  32. ENDOXAN [Concomitant]
     Route: 048
  33. ASACOL [Concomitant]
     Indication: CASTLEMAN^S DISEASE
     Route: 048

REACTIONS (12)
  - Colitis ulcerative [Recovered/Resolved]
  - Ascites [Recovered/Resolved]
  - Colitis ulcerative [Recovered/Resolved]
  - Sepsis [Recovered/Resolved]
  - Platelet count decreased [Not Recovered/Not Resolved]
  - Hepatic function abnormal [Not Recovered/Not Resolved]
  - Pruritus [Recovered/Resolved]
  - Hypogammaglobulinaemia [Not Recovered/Not Resolved]
  - Diabetes mellitus [Recovered/Resolved]
  - Gynaecomastia [Recovered/Resolved]
  - Colitis ulcerative [Recovered/Resolved]
  - Pyrexia [Recovered/Resolved]
